FAERS Safety Report 7394924-3 (Version None)
Quarter: 2011Q2

REPORT INFORMATION
  Report Type: 
  Country: None (occurrence: None)
  Receive Date: 20110405
  Receipt Date: 20110330
  Transmission Date: 20111010
  Serious: Yes (Hospitalization)
  Sender: FDA-Public Use
  Company Number: B0710384A

PATIENT
  Sex: Female
  Weight: 37 kg

DRUGS (11)
  1. DIOVAN [Concomitant]
     Dosage: 1IUAX PER DAY
     Route: 048
     Dates: start: 20080515, end: 20080828
  2. RIZE [Concomitant]
     Dosage: 1IUAX PER DAY
     Route: 048
     Dates: start: 20080515, end: 20080904
  3. MYCOSYST [Concomitant]
     Dosage: 1IUAX PER DAY
     Route: 048
     Dates: start: 20080513
  4. PREDONINE [Concomitant]
     Route: 048
     Dates: start: 20080508
  5. TAKEPRON [Concomitant]
     Dosage: 1IUAX PER DAY
     Route: 048
     Dates: start: 20080515, end: 20080828
  6. ALKERAN [Suspect]
     Indication: STEM CELL TRANSPLANT
     Dosage: 100MGM2 PER DAY
     Route: 042
     Dates: start: 20080824, end: 20080825
  7. MAGMITT [Concomitant]
     Route: 048
     Dates: start: 20080515
  8. GRANISETRON HCL [Concomitant]
     Dosage: 3MG PER DAY
     Route: 042
     Dates: start: 20080824, end: 20080825
  9. BACTRIM [Concomitant]
     Dosage: 1IUAX PER DAY
     Route: 048
     Dates: start: 20080513, end: 20080828
  10. PERSANTIN [Concomitant]
     Dosage: 1IUAX PER DAY
     Route: 048
     Dates: start: 20080515, end: 20080828
  11. LENDORMIN [Concomitant]
     Dosage: 1IUAX PER DAY
     Route: 048
     Dates: start: 20080515

REACTIONS (2)
  - FEBRILE NEUTROPENIA [None]
  - MUCOUS MEMBRANE DISORDER [None]
